FAERS Safety Report 7779304-0 (Version None)
Quarter: 2011Q3

REPORT INFORMATION
  Report Type: 
  Country: None (occurrence: None)
  Receive Date: 20110926
  Receipt Date: 20110902
  Transmission Date: 20111222
  Serious: Yes (Other)
  Sender: FDA-Public Use
  Company Number: US-ASTRAZENECA-2010SE43044

PATIENT
  Age: 47 Year
  Sex: Female
  Weight: 90.7 kg

DRUGS (9)
  1. SEROQUEL [Suspect]
     Dosage: 100 MG ONE TABLET IN MORNING AND TWO TABLETS AT NIGHT
     Route: 048
  2. TRAZODONE HCL [Concomitant]
  3. XANAFEX [Concomitant]
  4. NEXIUM [Suspect]
     Indication: GASTROOESOPHAGEAL REFLUX DISEASE
     Dosage: SOMETIMES 2 CAPSULES PER DAY
     Route: 048
  5. SEROQUEL [Suspect]
     Dosage: 100 MG ONE TABLET IN MORNING AND TWO TABLETS AT NIGHT
     Route: 048
  6. NEXIUM [Suspect]
     Route: 048
  7. SEROQUEL [Suspect]
     Indication: BIPOLAR DISORDER
     Route: 048
     Dates: start: 20000101
  8. SEROQUEL [Suspect]
     Indication: OBSESSIVE-COMPULSIVE DISORDER
     Route: 048
     Dates: start: 20000101
  9. TOPAMAX [Concomitant]

REACTIONS (17)
  - CONVULSION [None]
  - DIARRHOEA [None]
  - HEADACHE [None]
  - RESTLESS LEGS SYNDROME [None]
  - MALAISE [None]
  - ASTHENIA [None]
  - GASTROOESOPHAGEAL REFLUX DISEASE [None]
  - PAIN [None]
  - COLD SWEAT [None]
  - INCORRECT DOSE ADMINISTERED [None]
  - DRUG DOSE OMISSION [None]
  - FLATULENCE [None]
  - HYPERHIDROSIS [None]
  - ABDOMINAL DISCOMFORT [None]
  - RETCHING [None]
  - DYSPEPSIA [None]
  - MEDICATION ERROR [None]
